FAERS Safety Report 5857727-4 (Version None)
Quarter: 2008Q3

REPORT INFORMATION
  Report Type: 
  Country: None (occurrence: None)
  Receive Date: 20080818
  Receipt Date: 20080613
  Transmission Date: 20090109
  Serious: No
  Sender: FDA-Public Use
  Company Number: WAES 0806USA02858

PATIENT
  Age: 59 Year
  Sex: Female

DRUGS (6)
  1. JANUVIA [Suspect]
     Indication: BLOOD GLUCOSE
     Dosage: PO ; 100 MG/DAILY/PO ; PO
     Route: 048
     Dates: start: 20070524
  2. JANUVIA [Suspect]
     Indication: BLOOD GLUCOSE
     Dosage: PO ; 100 MG/DAILY/PO ; PO
     Route: 048
     Dates: start: 20071213
  3. PRANDIN [Concomitant]
  4. ENALAPRIL MALEATE [Concomitant]
  5. METFORMIN HCL [Concomitant]
  6. SIMVASTATIN [Concomitant]

REACTIONS (2)
  - BLOOD GLUCOSE INCREASED [None]
  - UPPER RESPIRATORY TRACT INFECTION [None]
